FAERS Safety Report 7832164-1 (Version None)
Quarter: 2011Q4

REPORT INFORMATION
  Report Type: 
  Country: None (occurrence: None)
  Receive Date: 20111022
  Receipt Date: 20100830
  Transmission Date: 20120403
  Serious: No
  Sender: FDA-Public Use
  Company Number: US-BAYER-201032148NA

PATIENT
  Age: 69 Year
  Sex: Male

DRUGS (1)
  1. CIPROFLOXACIN [Suspect]
     Dosage: UNK
     Dates: start: 20100623

REACTIONS (2)
  - ARTHRALGIA [None]
  - TENDON PAIN [None]
